FAERS Safety Report 15507444 (Version 1)
Quarter: 2018Q4

REPORT INFORMATION
  Report Type: Spontaneous
  Country: GB (occurrence: GB)
  Receive Date: 20181016
  Receipt Date: 20181016
  Transmission Date: 20190205
  Serious: Yes (Disabling)
  Sender: FDA-Public Use
  Company Number: GB-PFIZER INC-2018410277

PATIENT
  Age: 71 Year
  Sex: Male
  Weight: 92.7 kg

DRUGS (5)
  1. THIAMINE HYDROCHLORIDE. [Concomitant]
     Active Substance: THIAMINE HYDROCHLORIDE
     Dosage: 300 MG, DAILY (DIVIDED 100MG DOSES)
  2. PARACETAMOL [Concomitant]
     Active Substance: ACETAMINOPHEN
     Dosage: 4000 MG, 1X/DAY
     Dates: end: 201806
  3. ATORVASTATIN CALCIUM. [Suspect]
     Active Substance: ATORVASTATIN CALCIUM
     Indication: HYPERCHOLESTEROLAEMIA
     Dosage: 20 MG, UNK
     Route: 048
     Dates: start: 20180424, end: 20180827
  4. ECHINACEA PURPUREA [Concomitant]
     Active Substance: ECHINACEA PURPUREA
     Dosage: 2 DF, 1X/DAY
  5. ACETYLSALICYLIC ACID [Concomitant]
     Active Substance: ASPIRIN
     Dosage: 75 MG, 1X/DAY

REACTIONS (3)
  - Arthralgia [Recovered/Resolved with Sequelae]
  - Muscle atrophy [Unknown]
  - Myalgia [Recovered/Resolved with Sequelae]

NARRATIVE: CASE EVENT DATE: 20180510
